FAERS Safety Report 23981549 (Version 1)
Quarter: 2024Q2

REPORT INFORMATION
  Report Type: Other
  Country: PT (occurrence: PT)
  Receive Date: 20240617
  Receipt Date: 20240617
  Transmission Date: 20240716
  Serious: Yes (Hospitalization, Other)
  Sender: FDA-Public Use
  Company Number: PT-Vista Pharmaceuticals Inc.-2158202

PATIENT
  Age: 80 Year
  Sex: Male

DRUGS (1)
  1. SULFAMETHOXAZOLE\TRIMETHOPRIM [Suspect]
     Active Substance: SULFAMETHOXAZOLE\TRIMETHOPRIM
     Indication: Product used for unknown indication
     Route: 065

REACTIONS (5)
  - Hyperkalaemia [Unknown]
  - Renal impairment [Unknown]
  - Hyperchloraemia [Unknown]
  - Metabolic acidosis [Unknown]
  - Renal tubular acidosis [Not Recovered/Not Resolved]
